FAERS Safety Report 9127935 (Version 1)
Quarter: 2013Q1

REPORT INFORMATION
  Report Type: Spontaneous
  Country: US (occurrence: US)
  Receive Date: 20130122
  Receipt Date: 20130122
  Transmission Date: 20140127
  Serious: Yes (Other)
  Sender: FDA-Public Use
  Company Number: US-JNJFOC-20130103942

PATIENT
  Sex: Male
  Weight: 76.2 kg

DRUGS (3)
  1. ZYTIGA [Suspect]
     Indication: PROSTATE CANCER
     Dosage: 1000 MG DAILY DOSE
     Route: 048
     Dates: start: 2012, end: 20130107
  2. ISOSORBIDE [Concomitant]
     Indication: CARDIAC DISORDER
     Route: 065
  3. RANEXA [Concomitant]
     Indication: CARDIAC DISORDER
     Route: 065

REACTIONS (4)
  - Oedema peripheral [Not Recovered/Not Resolved]
  - Urine output decreased [Recovered/Resolved]
  - Pain [Not Recovered/Not Resolved]
  - Insomnia [Not Recovered/Not Resolved]
